FAERS Safety Report 9423893 (Version 1)
Quarter: 2013Q3

REPORT INFORMATION
  Report Type: Spontaneous
  Country: US (occurrence: US)
  Receive Date: 20130729
  Receipt Date: 20130729
  Transmission Date: 20140515
  Serious: No
  Sender: FDA-Public Use
  Company Number: US-JNJFOC-20130318560

PATIENT
  Sex: Female

DRUGS (2)
  1. NIZORAL A-D [Suspect]
     Route: 065
  2. NIZORAL A-D [Suspect]
     Indication: PRURITUS
     Route: 065

REACTIONS (4)
  - Hair colour changes [Not Recovered/Not Resolved]
  - Off label use [Unknown]
  - Hair texture abnormal [Not Recovered/Not Resolved]
  - Therapeutic response unexpected [Unknown]
